FAERS Safety Report 4992020-3 (Version None)
Quarter: 2006Q2

REPORT INFORMATION
  Report Type: 
  Country: None (occurrence: None)
  Receive Date: 20060504
  Receipt Date: 20060501
  Transmission Date: 20061013
  Serious: Yes (Other)
  Sender: FDA-Public Use
  Company Number: US-JNJFOC-20060202426

PATIENT
  Sex: Male
  Weight: 104.78 kg

DRUGS (1)
  1. LEVAQUIN [Suspect]
     Indication: BRONCHITIS
     Dates: start: 20060101, end: 20060110

REACTIONS (2)
  - LIGAMENT RUPTURE [None]
  - TENDON RUPTURE [None]
